FAERS Safety Report 5072936-2 (Version None)
Quarter: 2006Q3

REPORT INFORMATION
  Report Type: 
  Country: None (occurrence: None)
  Receive Date: 20060802
  Receipt Date: 20060720
  Transmission Date: 20061208
  Serious: Yes (Hospitalization)
  Sender: FDA-Public Use
  Company Number: A-JP2006-12677

PATIENT
  Age: 53 Year
  Sex: Female

DRUGS (3)
  1. TRACLEER [Suspect]
     Indication: PULMONARY HYPERTENSION
     Dosage: 62.5 MG, BID, ORAL
     Route: 048
     Dates: start: 20060410, end: 20060501
  2. EPOPROSTENOL SODIUM (EPOPROSTENOL SODIUM) [Concomitant]
  3. SILDENAFIL CITRATE [Concomitant]

REACTIONS (1)
  - ILEUS [None]
